FAERS Safety Report 21545283 (Version 1)
Quarter: 2022Q4

REPORT INFORMATION
  Report Type: Spontaneous
  Country: IT (occurrence: IT)
  Receive Date: 20221103
  Receipt Date: 20221103
  Transmission Date: 20230112
  Serious: Yes (Other)
  Sender: FDA-Public Use
  Company Number: IT-SUN PHARMACEUTICAL INDUSTRIES LTD-2022RR-361671

PATIENT
  Age: 58 Year
  Sex: Male
  Weight: 70 kg

DRUGS (3)
  1. OXALIPLATIN [Suspect]
     Active Substance: OXALIPLATIN
     Indication: Colorectal adenocarcinoma
     Dosage: 126.7 MILLIGRAM; 100MG / M2 (70% REDUCTION)
     Route: 040
     Dates: start: 20220708, end: 20221011
  2. FLUOROURACIL [Suspect]
     Active Substance: FLUOROURACIL
     Indication: Colorectal adenocarcinoma
     Dosage: 506.8 MILLIGRAM; FLUOROURACIL IV BOLUS 400MG / M2 (70% REDUCTION)
     Route: 040
     Dates: start: 20220708, end: 20221011
  3. FLUOROURACIL [Suspect]
     Active Substance: FLUOROURACIL
     Indication: Colorectal adenocarcinoma
     Dosage: 3040.8 MILLIGRAM; FLUOROURACIL IV 2400MG / M2 (70% REDUCTION)
     Route: 040
     Dates: start: 20220708, end: 20221011

REACTIONS (3)
  - Device related thrombosis [Recovered/Resolved]
  - Diarrhoea [Recovered/Resolved]
  - Pyrexia [Recovered/Resolved]

NARRATIVE: CASE EVENT DATE: 20220709
